FAERS Safety Report 16871283 (Version 1)
Quarter: 2019Q4

REPORT INFORMATION
  Report Type: Report from Study
  Country: None (occurrence: US)
  Receive Date: 20191001
  Receipt Date: 20191001
  Transmission Date: 20200122
  Serious: Yes (Other)
  Sender: FDA-Public Use
  Company Number: US-ABBVIE-19K-163-2938768-00

PATIENT
  Age: 54 Year
  Sex: Male

DRUGS (1)
  1. HUMIRA [Suspect]
     Active Substance: ADALIMUMAB
     Indication: RHEUMATOID ARTHRITIS
     Route: 058

REACTIONS (10)
  - Knee arthroplasty [Unknown]
  - Loss of consciousness [Unknown]
  - Lower limb fracture [Unknown]
  - Hypertension [Unknown]
  - Mobility decreased [Unknown]
  - Brain injury [Unknown]
  - Depression [Unknown]
  - Abdominal pain upper [Unknown]
  - Gastrooesophageal reflux disease [Unknown]
  - Monoplegia [Unknown]

NARRATIVE: CASE EVENT DATE: 20171211
